FAERS Safety Report 17733775 (Version 2)
Quarter: 2022Q4

REPORT INFORMATION
  Report Type: Other
  Country: JP (occurrence: JP)
  Receive Date: 20200501
  Receipt Date: 20221215
  Transmission Date: 20230113
  Serious: Yes (Death, Hospitalization, Other)
  Sender: FDA-Public Use
  Company Number: JP-CHUGAI-A2020021356ROCHE

PATIENT
  Age: 80 Year
  Sex: Female

DRUGS (25)
  1. ATEZOLIZUMAB [Suspect]
     Active Substance: ATEZOLIZUMAB
     Indication: Non-small cell lung cancer
     Dosage: TWO COURSES
     Route: 041
     Dates: start: 20200128, end: 20200219
  2. BEVACIZUMAB [Suspect]
     Active Substance: BEVACIZUMAB
     Indication: Non-small cell lung cancer
     Route: 042
     Dates: start: 20200128, end: 20200219
  3. CARBOPLATIN [Suspect]
     Active Substance: CARBOPLATIN
     Indication: Non-small cell lung cancer
     Dosage: TWO COURSES
     Route: 041
     Dates: start: 20200128, end: 20200219
  4. PACLITAXEL [Suspect]
     Active Substance: PACLITAXEL
     Indication: Non-small cell lung cancer
     Dosage: TWO COURSES
     Route: 041
     Dates: start: 20200128, end: 20200219
  5. CALCIUM CARBONATE\CHOLECALCIFEROL\MAGNESIUM CARBONATE [Concomitant]
     Active Substance: CALCIUM CARBONATE\CHOLECALCIFEROL\MAGNESIUM CARBONATE
     Indication: Prophylaxis
     Dosage: DOSE INTERVAL UNCERTAINTY
     Route: 048
     Dates: end: 20200229
  6. LOPERAMIDE [Concomitant]
     Active Substance: LOPERAMIDE
     Indication: Prophylaxis
     Dosage: DOSE INTERVAL UNCERTAINTY
     Route: 048
     Dates: end: 20200225
  7. CALONAL [Concomitant]
     Active Substance: ACETAMINOPHEN
     Indication: Non-small cell lung cancer
     Route: 048
     Dates: end: 20200229
  8. AMITIZA [Concomitant]
     Active Substance: LUBIPROSTONE
     Indication: Constipation
     Dosage: DOSE INTERVAL UNCERTAINTY
     Route: 048
     Dates: end: 20200205
  9. LOXOPROFEN SODIUM DIHYDRATE [Concomitant]
     Active Substance: LOXOPROFEN SODIUM DIHYDRATE
     Indication: Non-small cell lung cancer
     Dosage: DOSE INTERVAL UNCERTAINTY
     Route: 048
     Dates: end: 20200229
  10. NEXIUM [Concomitant]
     Active Substance: ESOMEPRAZOLE MAGNESIUM
     Indication: Prophylaxis
     Dosage: DOSE INTERVAL UNCERTAINTY
     Route: 048
     Dates: end: 20200205
  11. SPIRONOLACTONE [Concomitant]
     Active Substance: SPIRONOLACTONE
     Indication: Oedema peripheral
     Dosage: DOSE INTERVAL UNCERTAINTY
     Route: 048
     Dates: end: 20200229
  12. FUROSEMIDE [Concomitant]
     Active Substance: FUROSEMIDE
     Indication: Oedema peripheral
     Dosage: DOSE INTERVAL UNCERTAINTY
     Route: 048
     Dates: end: 20200229
  13. DECADRON [Concomitant]
     Active Substance: DEXAMETHASONE
     Indication: Prophylaxis
     Route: 048
     Dates: start: 20200129, end: 20200130
  14. DECADRON [Concomitant]
     Active Substance: DEXAMETHASONE
     Route: 048
     Dates: start: 20200219, end: 20200220
  15. FLAVIN ADENINE DINUCLEOTIDE [Concomitant]
     Active Substance: FLAVIN ADENINE DINUCLEOTIDE
     Indication: Prophylaxis
     Dosage: DOSE INTERVAL UNCERTAINTY
     Route: 048
     Dates: end: 20200226
  16. PYRIDOXAL [Concomitant]
     Active Substance: PYRIDOXAL
     Indication: Prophylaxis
     Dosage: DOSE INTERVAL UNCERTAINTY
     Route: 048
     Dates: end: 20200226
  17. FEXOFENADINE HYDROCHLORIDE [Concomitant]
     Active Substance: FEXOFENADINE HYDROCHLORIDE
     Indication: Non-small cell lung cancer
     Dosage: DOSE INTERVAL UNCERTAINTY
     Route: 048
     Dates: end: 20200229
  18. PREDONINE [Concomitant]
     Active Substance: PREDNISOLONE
     Indication: Oedema peripheral
     Dosage: DOSE INTERVAL UNCERTAINTY
     Route: 048
     Dates: end: 20200226
  19. METOCLOPRAMIDE [Concomitant]
     Active Substance: METOCLOPRAMIDE
     Indication: Prophylaxis
     Route: 048
     Dates: start: 20200201
  20. MAGNESIUM OXIDE [Concomitant]
     Active Substance: MAGNESIUM OXIDE
     Indication: Constipation
     Route: 048
     Dates: start: 20200203, end: 20200205
  21. SENNOSIDES [Concomitant]
     Active Substance: SENNOSIDES
     Indication: Constipation
     Route: 048
     Dates: start: 20200205, end: 20200224
  22. NEGMIN [Concomitant]
     Indication: Pruritus
     Dosage: DOSAGE IS UNCERTAIN.
     Route: 003
     Dates: end: 2020
  23. LANSOPRAZOLE [Concomitant]
     Active Substance: LANSOPRAZOLE
     Indication: Prophylaxis
     Dosage: DOSE INTERVAL UNCERTAINTY
     Route: 048
     Dates: start: 20200206, end: 20200229
  24. FENTANYL [Concomitant]
     Active Substance: FENTANYL
     Indication: Non-small cell lung cancer
     Dosage: DOSE INTERVAL UNCERTAINTY
     Route: 062
     Dates: start: 20200206, end: 2020
  25. CELECOXIB [Concomitant]
     Active Substance: CELECOXIB
     Indication: Non-small cell lung cancer
     Dosage: DOSE INTERVAL UNCERTAINTY
     Route: 048
     Dates: start: 20200219

REACTIONS (8)
  - Pneumonia [Fatal]
  - Pleurisy [Unknown]
  - Atrial fibrillation [Unknown]
  - Pneumothorax [Unknown]
  - Pneumonia [Unknown]
  - White blood cell count decreased [Unknown]
  - Proteinuria [Unknown]
  - Platelet count decreased [Unknown]

NARRATIVE: CASE EVENT DATE: 20200201
